FAERS Safety Report 8549517-9 (Version None)
Quarter: 2012Q3

REPORT INFORMATION
  Report Type: 
  Country: None (occurrence: None)
  Receive Date: 20120730
  Receipt Date: 20120726
  Transmission Date: 20120928
  Serious: Yes (Death, Other)
  Sender: FDA-Public Use
  Company Number: US-PFIZER INC-2012182524

PATIENT
  Sex: Male

DRUGS (7)
  1. IRON [Concomitant]
  2. INLYTA [Suspect]
     Indication: RENAL CANCER
     Dosage: 5 MG, 2X/DAY
     Route: 048
     Dates: start: 20120215, end: 20120511
  3. CELEBREX [Concomitant]
  4. OXYCONTIN [Concomitant]
  5. OXYCODONE [Concomitant]
  6. CALCIUM [Concomitant]
  7. VITAMIN E [Concomitant]

REACTIONS (1)
  - DEATH [None]
